FAERS Safety Report 8800257 (Version 1)
Quarter: 2012Q4

REPORT INFORMATION
  Report Type: 
  Country: AR (occurrence: AR)
  Receive Date: 20120921
  Receipt Date: 20120921
  Transmission Date: 20130627
  Serious: Yes (Death)
  Sender: FDA-Public Use
  Company Number: PHHY2012AR081917

PATIENT
  Age: 83 Year
  Sex: Male

DRUGS (1)
  1. EXELON [Suspect]
     Indication: COGNITIVE DISORDER
     Dosage: 9 mg, Daily
     Dates: start: 2008

REACTIONS (1)
  - Cardio-respiratory arrest [Fatal]
